FAERS Safety Report 4761224-7 (Version None)
Quarter: 2005Q3

REPORT INFORMATION
  Report Type: 
  Country: None (occurrence: None)
  Receive Date: 20050830
  Receipt Date: 20050711
  Transmission Date: 20060218
  Serious: No
  Sender: FDA-Public Use
  Company Number: FABR-11166

PATIENT
  Sex: Male
  Weight: 73.4827 kg

DRUGS (2)
  1. FABRAZYME [Suspect]
     Indication: FABRY'S DISEASE
     Dosage: 75 MG IV
     Route: 042
     Dates: start: 20050708
  2. TYLENOL (CAPLET) [Concomitant]

REACTIONS (3)
  - MALAISE [None]
  - PYREXIA [None]
  - VOMITING [None]
